FAERS Safety Report 5026844-3 (Version None)
Quarter: 2006Q2

REPORT INFORMATION
  Report Type: 
  Country: None (occurrence: None)
  Receive Date: 20060615
  Receipt Date: 20040714
  Transmission Date: 20061013
  Serious: Yes (Hospitalization)
  Sender: FDA-Public Use
  Company Number: PHEH2004US07674

PATIENT
  Age: 2 Year
  Sex: Male
  Weight: 13.6 kg

DRUGS (6)
  1. ELIDEL [Suspect]
     Indication: DERMATITIS ATOPIC
     Dosage: 1 G, BID
     Route: 061
     Dates: start: 20030410, end: 20030401
  2. ELIDEL [Suspect]
     Dosage: UNK, PRN
     Route: 061
     Dates: start: 20030401, end: 20031013
  3. ZITHROMAX [Concomitant]
  4. BIAXIN [Concomitant]
  5. OMNICEF [Concomitant]
  6. EUCERIN CREME [Concomitant]

REACTIONS (23)
  - AGRANULOCYTOSIS [None]
  - ANAEMIA [None]
  - CONSTIPATION [None]
  - COUGH [None]
  - DECREASED APPETITE [None]
  - DEHYDRATION [None]
  - DIARRHOEA [None]
  - DYSPNOEA [None]
  - GINGIVAL BLEEDING [None]
  - HYPERHIDROSIS [None]
  - HYPONATRAEMIA [None]
  - NON-HODGKIN'S LYMPHOMA [None]
  - ORAL CANDIDIASIS [None]
  - PAIN [None]
  - PNEUMONIA [None]
  - PYREXIA [None]
  - RESPIRATORY DISTRESS [None]
  - STAPHYLOCOCCAL INFECTION [None]
  - STOMATITIS [None]
  - THROMBOCYTOPENIA [None]
  - VOMITING [None]
  - WEIGHT DECREASED [None]
  - WOUND INFECTION [None]
